FAERS Safety Report 25196611 (Version 2)
Quarter: 2025Q2

REPORT INFORMATION
  Report Type: Spontaneous
  Country: US (occurrence: US)
  Receive Date: 20250415
  Receipt Date: 20250417
  Transmission Date: 20250716
  Serious: No
  Sender: ELI LILLY AND CO
  Company Number: US-ELI_LILLY_AND_COMPANY-US202504010262

PATIENT
  Age: 66 Year
  Sex: Male

DRUGS (8)
  1. ZEPBOUND [Suspect]
     Active Substance: TIRZEPATIDE
     Indication: Weight control
     Route: 058
     Dates: start: 202406
  2. ZEPBOUND [Suspect]
     Active Substance: TIRZEPATIDE
     Indication: Weight control
     Route: 058
     Dates: start: 202406
  3. ZEPBOUND [Suspect]
     Active Substance: TIRZEPATIDE
     Indication: Weight control
     Route: 058
     Dates: start: 202406
  4. ZEPBOUND [Suspect]
     Active Substance: TIRZEPATIDE
     Indication: Weight control
     Route: 058
     Dates: start: 202406
  5. ZEPBOUND [Suspect]
     Active Substance: TIRZEPATIDE
     Route: 058
     Dates: start: 202412
  6. ZEPBOUND [Suspect]
     Active Substance: TIRZEPATIDE
     Route: 058
     Dates: start: 202412
  7. ZEPBOUND [Suspect]
     Active Substance: TIRZEPATIDE
     Route: 058
     Dates: start: 202412
  8. ZEPBOUND [Suspect]
     Active Substance: TIRZEPATIDE
     Route: 058
     Dates: start: 202412

REACTIONS (1)
  - Diarrhoea [Recovered/Resolved]

NARRATIVE: CASE EVENT DATE: 20250301
